FAERS Safety Report 13742623 (Version 1)
Quarter: 2017Q3

REPORT INFORMATION
  Report Type: Spontaneous
  Country: GB (occurrence: GB)
  Receive Date: 20170711
  Receipt Date: 20170711
  Transmission Date: 20171127
  Serious: Yes (Disabling, Other)
  Sender: FDA-Public Use
  Company Number: GB-BAYER-2017-128350

PATIENT
  Age: 18 Year
  Sex: Female
  Weight: 45.36 kg

DRUGS (3)
  1. CETIRIZINE HYDROCHLORIDE. [Concomitant]
     Active Substance: CETIRIZINE HYDROCHLORIDE
  2. YASMIN ED, FILM-COATED TABLETS, 0.03 MG/3 MG [Suspect]
     Active Substance: DROSPIRENONE\ETHINYL ESTRADIOL
     Indication: CONTRACEPTION
     Dosage: UNK
     Route: 048
     Dates: start: 20170408, end: 20170624
  3. PARACETAMOL [Concomitant]
     Active Substance: ACETAMINOPHEN

REACTIONS (19)
  - Premenstrual cramps [Unknown]
  - Dyspnoea [Unknown]
  - Fatigue [Not Recovered/Not Resolved]
  - Hot flush [Recovering/Resolving]
  - Agitation [Not Recovered/Not Resolved]
  - Seborrhoea [Unknown]
  - Depression [Not Recovered/Not Resolved]
  - Dizziness [Unknown]
  - Menstrual disorder [Unknown]
  - Nausea [Unknown]
  - Abdominal tenderness [Unknown]
  - Dysmenorrhoea [Unknown]
  - Vertigo [Recovering/Resolving]
  - Anxiety [Not Recovered/Not Resolved]
  - Insomnia [Not Recovered/Not Resolved]
  - Myalgia [Recovering/Resolving]
  - Crying [Unknown]
  - Menorrhagia [Unknown]
  - Affect lability [Unknown]

NARRATIVE: CASE EVENT DATE: 20170408
